FAERS Safety Report 24587585 (Version 1)
Quarter: 2024Q4

REPORT INFORMATION
  Report Type: Other
  Country: IN (occurrence: IN)
  Receive Date: 20241107
  Receipt Date: 20241107
  Transmission Date: 20250115
  Serious: Yes (Other)
  Sender: ANI
  Company Number: IN-ANIPHARMA-012701

PATIENT
  Age: 34 Year
  Sex: Male

DRUGS (1)
  1. CLOBETASOL [Suspect]
     Active Substance: CLOBETASOL
     Indication: Psoriasis

REACTIONS (3)
  - Spinal fracture [Unknown]
  - Cushing^s syndrome [Recovering/Resolving]
  - Intentional product misuse [Unknown]
